FAERS Safety Report 25922423 (Version 2)
Quarter: 2025Q4

REPORT INFORMATION
  Report Type: Spontaneous
  Country: US (occurrence: US)
  Receive Date: 20251015
  Receipt Date: 20251105
  Transmission Date: 20260118
  Serious: Yes (Other)
  Sender: TEVA
  Company Number: US-TEVA-VS-3379929

PATIENT
  Age: 29 Year
  Sex: Female

DRUGS (1)
  1. TESTOSTERONE [Suspect]
     Active Substance: TESTOSTERONE
     Indication: Hormone replacement therapy
     Route: 065

REACTIONS (2)
  - Disease susceptibility [Recovered/Resolved]
  - Neurotoxicity [Recovered/Resolved]
